FAERS Safety Report 8212425-7 (Version None)
Quarter: 2012Q1

REPORT INFORMATION
  Report Type: 
  Country: None (occurrence: None)
  Receive Date: 20120315
  Receipt Date: 20120309
  Transmission Date: 20120608
  Serious: Yes (Hospitalization)
  Sender: FDA-Public Use
  Company Number: US-BAYER-201032438NA

PATIENT
  Age: 26 Year
  Sex: Female
  Weight: 118 kg

DRUGS (6)
  1. YAZ [Suspect]
     Dosage: UNK UNK, UNK
     Route: 048
     Dates: start: 20090101
  2. YASMIN [Suspect]
     Route: 048
     Dates: start: 20090301, end: 20090901
  3. DROSPIRENONE AND ETHINYL ESTRADIOL [Suspect]
     Indication: PRODUCT USED FOR UNKNOWN INDICATION
     Dosage: UNK
     Route: 048
     Dates: start: 20090418, end: 20090708
  4. DROSPIRENONE AND ETHINYL ESTRADIOL [Suspect]
     Route: 048
     Dates: start: 20090301, end: 20090901
  5. NSAID'S [Concomitant]
  6. YASMIN [Suspect]
     Route: 048
     Dates: start: 20040801, end: 20090301

REACTIONS (2)
  - DEEP VEIN THROMBOSIS [None]
  - OEDEMA PERIPHERAL [None]
